FAERS Safety Report 26167216 (Version 1)
Quarter: 2025Q4

REPORT INFORMATION
  Report Type: Spontaneous
  Country: US (occurrence: US)
  Receive Date: 20251217
  Receipt Date: 20251217
  Transmission Date: 20260118
  Serious: Yes (Life-Threatening, Hospitalization)
  Sender: EMCURE PHARMACEUTICALS LTD
  Company Number: US-AVET LIFESCIENCES LTD-2025-AVET-000362

PATIENT

DRUGS (1)
  1. TRANEXAMIC ACID [Suspect]
     Active Substance: TRANEXAMIC ACID
     Indication: Product used for unknown indication
     Dosage: 300 MILLIGRAM
     Route: 037

REACTIONS (7)
  - Radiculopathy [Unknown]
  - Muscle spasms [Unknown]
  - Generalised tonic-clonic seizure [Recovered/Resolved]
  - Depressed level of consciousness [Unknown]
  - Toxicity to various agents [Unknown]
  - Medication error [Unknown]
  - Incorrect route of product administration [Unknown]
